FAERS Safety Report 17554098 (Version 1)
Quarter: 2020Q1

REPORT INFORMATION
  Report Type: Report from Study
  Country: None (occurrence: US)
  Receive Date: 20200317
  Receipt Date: 20200317
  Transmission Date: 20200409
  Serious: Yes (Hospitalization, Other)
  Sender: FDA-Public Use
  Company Number: US-ABBVIE-20K-163-3320354-00

PATIENT
  Sex: Female

DRUGS (3)
  1. HUMIRA [Suspect]
     Active Substance: ADALIMUMAB
     Indication: MALAISE
     Route: 058
     Dates: start: 2012, end: 2016
  2. HUMIRA [Suspect]
     Active Substance: ADALIMUMAB
     Dosage: DAY 2
     Route: 058
     Dates: start: 2020
  3. HUMIRA [Suspect]
     Active Substance: ADALIMUMAB
     Indication: MALAISE
     Dosage: DAY 1
     Route: 058
     Dates: start: 2020, end: 2020

REACTIONS (9)
  - Stenosis [Unknown]
  - Scar [Unknown]
  - Arthropathy [Recovered/Resolved]
  - Respiratory tract congestion [Unknown]
  - Cough [Unknown]
  - Nasopharyngitis [Unknown]
  - Crohn^s disease [Unknown]
  - Obstruction [Unknown]
  - Therapeutic product effect decreased [Unknown]

NARRATIVE: CASE EVENT DATE: 2017
